FAERS Safety Report 5277082-0 (Version None)
Quarter: 2007Q1

REPORT INFORMATION
  Report Type: 
  Country: None (occurrence: None)
  Receive Date: 20070327
  Receipt Date: 20070319
  Transmission Date: 20070707
  Serious: Yes (Other)
  Sender: FDA-Public Use
  Company Number: US-GLAXOSMITHKLINE-A0643692A

PATIENT
  Age: 93 Year
  Sex: Female

DRUGS (6)
  1. COREG [Suspect]
     Dosage: 12.5MG THREE TIMES PER DAY
     Route: 048
     Dates: end: 20070301
  2. LANOXIN [Suspect]
     Indication: CARDIAC FAILURE
     Dosage: .125MG PER DAY
     Route: 048
  3. DIGOXIN [Concomitant]
  4. AVAPRO [Concomitant]
  5. IMDUR [Concomitant]
  6. COUMADIN [Concomitant]

REACTIONS (4)
  - DRUG INTERACTION [None]
  - HEART RATE DECREASED [None]
  - HEART RATE INCREASED [None]
  - NASAL SEPTUM PERFORATION [None]
